FAERS Safety Report 5283973-7 (Version None)
Quarter: 2007Q2

REPORT INFORMATION
  Report Type: 
  Country: None (occurrence: None)
  Receive Date: 20070402
  Receipt Date: 20070322
  Transmission Date: 20071010
  Serious: Yes (Disabling)
  Sender: FDA-Public Use
  Company Number: PT-PFIZER INC-2007007532

PATIENT
  Sex: Female

DRUGS (1)
  1. ZARATOR [Suspect]
     Dosage: DAILY DOSE:10MG
     Route: 048

REACTIONS (2)
  - ABASIA [None]
  - GAIT DISTURBANCE [None]
